FAERS Safety Report 13009081 (Version 1)
Quarter: 2016Q4

REPORT INFORMATION
  Report Type: Report from Study
  Country: US (occurrence: US)
  Receive Date: 20161208
  Receipt Date: 20161208
  Transmission Date: 20170207
  Serious: Yes (Hospitalization)
  Sender: FDA-Public Use
  Company Number: US-ACTELION-A-US2016-131702

PATIENT
  Age: 73 Year
  Sex: Female

DRUGS (10)
  1. OPSUMIT [Suspect]
     Active Substance: MACITENTAN
     Indication: PULMONARY ARTERIAL HYPERTENSION
     Dosage: 10 MG, QD
     Route: 048
     Dates: start: 20141115, end: 20160307
  2. SINGULAIR [Concomitant]
     Active Substance: MONTELUKAST SODIUM
     Dosage: UNK
     Dates: start: 20141002
  3. METOPROLOL. [Concomitant]
     Active Substance: METOPROLOL
     Dosage: UNK
     Dates: start: 20150624
  4. PENTASA [Concomitant]
     Active Substance: MESALAMINE
     Dosage: UNK
     Dates: start: 20150824
  5. ZANTAC [Concomitant]
     Active Substance: RANITIDINE HYDROCHLORIDE
     Dosage: UNK
     Dates: start: 20150824
  6. HYDROXYUREA. [Concomitant]
     Active Substance: HYDROXYUREA
     Dosage: UNK
     Dates: start: 20150403
  7. BECLOMETHASONE [Concomitant]
     Active Substance: BECLOMETHASONE
     Dosage: UNK
     Dates: start: 20141002
  8. PRILOSEC [Concomitant]
     Active Substance: OMEPRAZOLE MAGNESIUM
     Dosage: UNK
     Dates: start: 20140728
  9. PROAIR HFA [Concomitant]
     Active Substance: ALBUTEROL SULFATE
     Dosage: UNK
     Dates: start: 20141002
  10. SYMBICORT [Concomitant]
     Active Substance: BUDESONIDE\FORMOTEROL FUMARATE DIHYDRATE
     Dosage: UNK
     Dates: start: 20141002

REACTIONS (25)
  - Respiratory distress [Recovered/Resolved]
  - Blood pH decreased [Recovered/Resolved]
  - Flank pain [Recovering/Resolving]
  - Acute pulmonary oedema [Recovered/Resolved]
  - Dyspnoea [Recovered/Resolved]
  - Back pain [Unknown]
  - Cardiac failure congestive [Recovered/Resolved]
  - Mechanical ventilation [Recovered/Resolved]
  - Herpes zoster [Recovering/Resolving]
  - Anaemia [Recovering/Resolving]
  - Pleural effusion [Recovered/Resolved]
  - Osteoporosis [Unknown]
  - Abscess drainage [Recovering/Resolving]
  - Transfusion [Recovering/Resolving]
  - Condition aggravated [Unknown]
  - Subcutaneous abscess [Recovering/Resolving]
  - Wound infection staphylococcal [Recovering/Resolving]
  - Urinary tract infection [Recovering/Resolving]
  - Pleurisy [Recovered/Resolved]
  - Chest pain [Recovered/Resolved]
  - Acute respiratory failure [Recovered/Resolved]
  - Brain natriuretic peptide increased [Recovered/Resolved]
  - Pneumonia [Recovered/Resolved]
  - Chronic obstructive pulmonary disease [Recovered/Resolved]
  - Fluid retention [Recovered/Resolved]

NARRATIVE: CASE EVENT DATE: 20151210
